FAERS Safety Report 9960997 (Version 1)
Quarter: 2014Q1

REPORT INFORMATION
  Report Type: Spontaneous
  Country: US (occurrence: None)
  Receive Date: 20140127
  Receipt Date: 20140127
  Transmission Date: 20141002
  Serious: Yes (Other)
  Sender: FDA-Public Use
  Company Number: 1209887

PATIENT
  Age: 69 Year
  Sex: Female

DRUGS (2)
  1. T-PA [Suspect]
     Indication: CEREBROVASCULAR ACCIDENT
     Dosage: 12 MG, INTRA-ARTERIAL
  2. HEPARIN (HEPARIN SODIUM) [Suspect]
     Indication: ANTICOAGULANT THERAPY
     Dosage: INTRAVENOUS (NOT OTHERWISE SPECIFIED)
     Route: 042

REACTIONS (1)
  - Petechiae [None]
